FAERS Safety Report 18761076 (Version 2)
Quarter: 2021Q1

REPORT INFORMATION
  Report Type: Spontaneous
  Country: PL (occurrence: PL)
  Receive Date: 20210119
  Receipt Date: 20210203
  Transmission Date: 20210419
  Serious: Yes (Other)
  Sender: FDA-Public Use
  Company Number: PL-BAXTER-2021BAX000835

PATIENT
  Age: 4 Year
  Sex: Male

DRUGS (1)
  1. MANNITOL 15% BAXTER, ROZTWOR DO INFUZJI [Suspect]
     Active Substance: MANNITOL
     Indication: PRODUCT USED FOR UNKNOWN INDICATION
     Route: 065

REACTIONS (2)
  - Vitreous haemorrhage [Unknown]
  - International normalised ratio increased [Unknown]
